FAERS Safety Report 7256823-7 (Version None)
Quarter: 2011Q1

REPORT INFORMATION
  Report Type: 
  Country: None (occurrence: None)
  Receive Date: 20110129
  Receipt Date: 20100618
  Transmission Date: 20110831
  Serious: No
  Sender: FDA-Public Use
  Company Number: US-ABBOTT-10P-163-0652298-00

PATIENT
  Age: 41 Year
  Sex: Female

DRUGS (7)
  1. NAPROXEN [Concomitant]
     Indication: PRODUCT USED FOR UNKNOWN INDICATION
  2. PREDNISONE [Concomitant]
     Indication: RHEUMATOID ARTHRITIS
  3. HYDROCHLOROTHIAZIDE [Concomitant]
     Indication: FLUID RETENTION
  4. VICODIN [Concomitant]
     Indication: PAIN
  5. RESTORIL [Concomitant]
     Indication: INSOMNIA
     Dosage: AT BEDTIME
  6. HUMIRA [Suspect]
     Indication: RHEUMATOID ARTHRITIS
     Dates: start: 20100614
  7. HYDROXYCHLOR [Concomitant]
     Indication: RHEUMATOID ARTHRITIS

REACTIONS (4)
  - MYALGIA [None]
  - HEADACHE [None]
  - ARTHRALGIA [None]
  - BACK PAIN [None]
